FAERS Safety Report 7951216-9 (Version None)
Quarter: 2011Q4

REPORT INFORMATION
  Report Type: 
  Country: None (occurrence: None)
  Receive Date: 20111128
  Receipt Date: 20111115
  Transmission Date: 20120403
  Serious: Yes (Other)
  Sender: FDA-Public Use
  Company Number: 017308

PATIENT
  Age: 82 Year
  Sex: Male

DRUGS (3)
  1. LEVOFLOXACIN [Concomitant]
  2. MACUGEN [Suspect]
     Indication: CHOROIDAL NEOVASCULARISATION
     Dosage: 0.3 MG INTO THE LEFT EYE, INTRAOCULAR
     Route: 031
     Dates: start: 20100525
  3. MACUGEN [Suspect]
     Indication: AGE-RELATED MACULAR DEGENERATION
     Dosage: 0.3 MG INTO THE LEFT EYE, INTRAOCULAR
     Route: 031
     Dates: start: 20100525

REACTIONS (1)
  - CEREBRAL INFARCTION [None]
